FAERS Safety Report 24808211 (Version 2)
Quarter: 2025Q2

REPORT INFORMATION
  Report Type: Spontaneous
  Country: US (occurrence: US)
  Receive Date: 20250106
  Receipt Date: 20250419
  Transmission Date: 20250716
  Serious: No
  Sender: APOTEX
  Company Number: US-APOTEX-2024AP020002

PATIENT
  Sex: Female

DRUGS (1)
  1. IBANDRONATE SODIUM [Suspect]
     Active Substance: IBANDRONATE SODIUM
     Indication: Product used for unknown indication
     Route: 042

REACTIONS (7)
  - Injection site pain [Unknown]
  - Injection site haemorrhage [Unknown]
  - Wrong technique in product usage process [Unknown]
  - Syringe issue [Unknown]
  - Needle issue [Unknown]
  - Product contamination [Unknown]
  - Product administration error [Unknown]

NARRATIVE: CASE EVENT DATE: 20241217
